FAERS Safety Report 4378287-3 (Version None)
Quarter: 2004Q2

REPORT INFORMATION
  Report Type: 
  Country: None (occurrence: None)
  Receive Date: 20040609
  Receipt Date: 20040602
  Transmission Date: 20050107
  Serious: Yes (Hospitalization)
  Sender: FDA-Public Use
  Company Number: JRFUSA2000000482

PATIENT
  Age: 72 Year
  Sex: Male

DRUGS (4)
  1. PROPULSID [Suspect]
     Indication: GASTROOESOPHAGEAL REFLUX DISEASE
     Dosage: 20 MG, 4 IN 1 DAY, ORAL
     Route: 048
     Dates: start: 19940101, end: 19991122
  2. PRILOSEC [Concomitant]
  3. XANAX [Concomitant]
  4. ISOSORBIDE [Concomitant]

REACTIONS (13)
  - ARTHRITIS [None]
  - CHEST DISCOMFORT [None]
  - CHEST PAIN [None]
  - DIVERTICULUM INTESTINAL [None]
  - DRUG EFFECT DECREASED [None]
  - DUODENITIS [None]
  - DYSPHAGIA [None]
  - DYSPNOEA [None]
  - GASTRITIS [None]
  - HIATUS HERNIA [None]
  - OESOPHAGEAL SPASM [None]
  - OESOPHAGITIS [None]
  - TRANSIENT ISCHAEMIC ATTACK [None]
